FAERS Safety Report 21621009 (Version 3)
Quarter: 2023Q1

REPORT INFORMATION
  Report Type: Spontaneous
  Country: US (occurrence: US)
  Receive Date: 20221121
  Receipt Date: 20230110
  Transmission Date: 20230418
  Serious: No
  Sender: FDA-Public Use
  Company Number: US-BRISTOL-MYERS SQUIBB COMPANY-2022-140592

PATIENT
  Age: 69 Year
  Sex: Male

DRUGS (1)
  1. REVLIMID [Suspect]
     Active Substance: LENALIDOMIDE
     Indication: Product used for unknown indication
     Route: 048
     Dates: start: 201601

REACTIONS (5)
  - COVID-19 [Unknown]
  - Back pain [Unknown]
  - Fatigue [Unknown]
  - Abdominal discomfort [Unknown]
  - Micturition disorder [Unknown]

NARRATIVE: CASE EVENT DATE: 20221118
